FAERS Safety Report 9387392 (Version 1)
Quarter: 2013Q3

REPORT INFORMATION
  Report Type: Spontaneous
  Country: US (occurrence: US)
  Receive Date: 20130708
  Receipt Date: 20130708
  Transmission Date: 20140515
  Serious: No
  Sender: FDA-Public Use
  Company Number: US-GLAXOSMITHKLINE-A1024156A

PATIENT
  Sex: Male

DRUGS (2)
  1. POTIGA [Suspect]
     Indication: PARTIAL SEIZURES
     Dosage: 100MG THREE TIMES PER DAY
     Route: 048
  2. CARBAMAZEPINE [Concomitant]

REACTIONS (2)
  - Weight decreased [Not Recovered/Not Resolved]
  - Regurgitation [Not Recovered/Not Resolved]
